FAERS Safety Report 22325956 (Version 1)
Quarter: 2023Q2

REPORT INFORMATION
  Report Type: Spontaneous
  Country: US (occurrence: None)
  Receive Date: 20230515
  Receipt Date: 20230515
  Transmission Date: 20230721
  Serious: No
  Sender: FDA-Public Use
  Company Number: None

PATIENT
  Age: 80 Year
  Sex: Female
  Weight: 100.24 kg

DRUGS (1)
  1. SOTYKTU [Suspect]
     Active Substance: DEUCRAVACITINIB
     Indication: Psoriasis
     Dosage: TAKE 1 TABLET BY MOUTH DAILY  AS DIRECTED        ?
     Route: 048
     Dates: start: 202212

REACTIONS (2)
  - Urinary tract infection [None]
  - Therapy interrupted [None]
